FAERS Safety Report 20446975 (Version 1)
Quarter: 2022Q1

REPORT INFORMATION
  Report Type: Spontaneous
  Country: CO (occurrence: CO)
  Receive Date: 20220209
  Receipt Date: 20220209
  Transmission Date: 20220423
  Serious: Yes (Death, Life-Threatening, Hospitalization, Other)
  Sender: FDA-Public Use
  Company Number: CO-AMGEN-COLSP2022018673

PATIENT

DRUGS (1)
  1. PEGFILGRASTIM [Suspect]
     Active Substance: PEGFILGRASTIM
     Indication: Prophylaxis
     Route: 065

REACTIONS (14)
  - Death [Fatal]
  - Post procedural pneumonia [Fatal]
  - Complications of transplant surgery [Fatal]
  - Testis cancer [Unknown]
  - Arrhythmia [Unknown]
  - Rhabdomyosarcoma [Unknown]
  - Vena cava injury [Unknown]
  - Testicular malignant teratoma [Unknown]
  - Septic shock [Unknown]
  - Shock haemorrhagic [Unknown]
  - Haemothorax [Unknown]
  - Postoperative wound infection [Unknown]
  - Myocarditis [Unknown]
  - Off label use [Unknown]
